FAERS Safety Report 18297605 (Version 2)
Quarter: 2025Q3

REPORT INFORMATION
  Report Type: Spontaneous
  Country: US (occurrence: US)
  Receive Date: 20200923
  Receipt Date: 20250819
  Transmission Date: 20251020
  Serious: Yes (Hospitalization, Other)
  Sender: AUROBINDO
  Company Number: US-MLMSERVICE-20200911-2479898-1

PATIENT
  Age: 78 Year
  Sex: Female

DRUGS (1)
  1. ACETAMINOPHEN [Suspect]
     Active Substance: ACETAMINOPHEN
     Indication: Decubitus ulcer
     Dosage: UNK UNK, ONCE A DAY
     Route: 065

REACTIONS (2)
  - Metabolic acidosis [Unknown]
  - Pyroglutamic acidosis [Unknown]
